FAERS Safety Report 12652783 (Version 2)
Quarter: 2016Q4

REPORT INFORMATION
  Report Type: Report from Study
  Country: DE (occurrence: DE)
  Receive Date: 20160815
  Receipt Date: 20161017
  Transmission Date: 20170207
  Serious: Yes (Hospitalization)
  Sender: FDA-Public Use
  Company Number: DE-BIOGEN-2016BI00276305

PATIENT
  Age: 44 Year
  Sex: Female
  Weight: 71 kg

DRUGS (12)
  1. TYSABRI [Suspect]
     Active Substance: NATALIZUMAB
     Indication: MULTIPLE SCLEROSIS
     Route: 042
     Dates: start: 20070705
  2. BACLOFEN. [Concomitant]
     Active Substance: BACLOFEN
     Indication: MULTIPLE SCLEROSIS
     Dosage: 0.5-0.5-1 TABLET DAILY
     Route: 048
     Dates: start: 20140512
  3. AMLODIPINE [Concomitant]
     Active Substance: AMLODIPINE BESYLATE
     Indication: PRODUCT USED FOR UNKNOWN INDICATION
     Dosage: UNIT DOSE: 10
     Route: 065
  4. MAXIM [Concomitant]
     Active Substance: DIENOGEST\ETHINYL ESTRADIOL
     Indication: PRODUCT USED FOR UNKNOWN INDICATION
     Route: 065
  5. CALCIUM [Concomitant]
     Active Substance: CALCIUM
     Indication: PRODUCT USED FOR UNKNOWN INDICATION
     Route: 065
  6. XARELTO [Concomitant]
     Active Substance: RIVAROXABAN
     Dosage: UNIT DOSE: 20
     Route: 065
  7. NEXIUM [Concomitant]
     Active Substance: ESOMEPRAZOLE MAGNESIUM
     Indication: PRODUCT USED FOR UNKNOWN INDICATION
     Dosage: UNIT DOSE: 40
     Route: 065
  8. RAMIPRIL. [Concomitant]
     Active Substance: RAMIPRIL
     Indication: HYPERTENSION
     Dosage: UNIT DOSE: 8
     Route: 048
     Dates: start: 20140210
  9. XARELTO [Concomitant]
     Active Substance: RIVAROXABAN
     Indication: PRODUCT USED FOR UNKNOWN INDICATION
     Dosage: UNIT DOSE: 15
     Route: 065
     Dates: end: 20160205
  10. BACLOFEN. [Concomitant]
     Active Substance: BACLOFEN
     Dosage: UNIT DOSE: 25
     Route: 065
  11. NOVALGIN [Concomitant]
     Active Substance: METAMIZOLE SODIUM
     Indication: PAIN IN EXTREMITY
     Route: 065
     Dates: start: 20160621
  12. SATIVEX [Concomitant]
     Active Substance: NABIXIMOLS
     Indication: MULTIPLE SCLEROSIS
     Dosage: 0-0-2
     Route: 048
     Dates: start: 20140512

REACTIONS (12)
  - Supraventricular extrasystoles [Recovered/Resolved]
  - Hypocalcaemia [Unknown]
  - Drug hypersensitivity [Recovered/Resolved]
  - Respiratory failure [Recovered/Resolved]
  - Pulmonary hypertension [Not Recovered/Not Resolved]
  - Hypokalaemia [Unknown]
  - Pleurisy [Recovered/Resolved]
  - Pulmonary embolism [Recovered/Resolved]
  - General physical health deterioration [Unknown]
  - Back pain [Unknown]
  - Dyspnoea [Unknown]
  - Cor pulmonale acute [Recovered/Resolved]

NARRATIVE: CASE EVENT DATE: 20160104
